FAERS Safety Report 9412456 (Version 1)
Quarter: 2013Q3

REPORT INFORMATION
  Report Type: Spontaneous
  Country: US (occurrence: US)
  Receive Date: 20130722
  Receipt Date: 20130722
  Transmission Date: 20140515
  Serious: Yes (Disabling, Other)
  Sender: FDA-Public Use
  Company Number: US-PFIZER INC-2013212202

PATIENT
  Age: 44 Year
  Sex: Female
  Weight: 104 kg

DRUGS (5)
  1. LYRICA [Suspect]
     Indication: FIBROMYALGIA
     Dosage: 150 MG, 2X/DAY
     Route: 048
  2. CELEBREX [Suspect]
     Indication: OSTEOARTHRITIS
     Dosage: 200 MG, 1X/DAY
     Route: 048
  3. VICTOZA [Concomitant]
     Dosage: UNK
  4. GLIPIZIDE [Concomitant]
     Dosage: UNK
  5. METFORMIN [Concomitant]
     Dosage: UNK

REACTIONS (5)
  - Fibromyalgia [Unknown]
  - Diabetes mellitus inadequate control [Unknown]
  - Carpal tunnel syndrome [Unknown]
  - Osteoarthritis [Unknown]
  - Blood glucose increased [Unknown]
